FAERS Safety Report 8035868-3 (Version None)
Quarter: 2012Q1

REPORT INFORMATION
  Report Type: 
  Country: None (occurrence: None)
  Receive Date: 20120111
  Receipt Date: 20120111
  Transmission Date: 20120608
  Serious: Yes (Other)
  Sender: FDA-Public Use
  Company Number: None

PATIENT
  Age: 28 Year
  Sex: Female
  Weight: 56.699 kg

DRUGS (1)
  1. MONISTAT [Suspect]

REACTIONS (3)
  - BURNING SENSATION [None]
  - SWELLING [None]
  - PRURITUS [None]
